FAERS Safety Report 18880712 (Version 2)
Quarter: 2021Q2

REPORT INFORMATION
  Report Type: Spontaneous
  Country: US (occurrence: US)
  Receive Date: 20210211
  Receipt Date: 20210427
  Transmission Date: 20210717
  Serious: No
  Sender: FDA-Public Use
  Company Number: US-PFIZER INC-2021123421

PATIENT
  Age: 55 Year
  Sex: Female

DRUGS (6)
  1. TYLENOL [Concomitant]
     Active Substance: ACETAMINOPHEN
  2. IBRANCE [Suspect]
     Active Substance: PALBOCICLIB
     Indication: BREAST CANCER
     Dosage: 125 MG, DAILY FOR 21 DAYS
     Route: 048
     Dates: start: 20201223
  3. PRILOSEC [Concomitant]
     Active Substance: OMEPRAZOLE MAGNESIUM
  4. XIIDRA [Concomitant]
     Active Substance: LIFITEGRAST
  5. SALONPAS (MENTHOL\METHYL SALICYLATE) [Concomitant]
     Active Substance: MENTHOL\METHYL SALICYLATE
  6. VITAMIN D3 [Concomitant]
     Active Substance: CHOLECALCIFEROL

REACTIONS (2)
  - Abdominal pain upper [Recovered/Resolved]
  - Constipation [Unknown]
